FAERS Safety Report 6447954-X (Version None)
Quarter: 2009Q4

REPORT INFORMATION
  Report Type: 
  Country: None (occurrence: None)
  Receive Date: 20091120
  Receipt Date: 20091105
  Transmission Date: 20100525
  Serious: Yes (Other)
  Sender: FDA-Public Use
  Company Number: US-JNJFOC-20091001041

PATIENT
  Sex: Female
  Weight: 107.5 kg

DRUGS (2)
  1. TAPENTADOL HYDROCHLORIDE [Suspect]
     Indication: BREAKTHROUGH PAIN
     Route: 048
  2. OPANA ER [Concomitant]
     Indication: PAIN
     Route: 065

REACTIONS (1)
  - CONFUSIONAL STATE [None]
